FAERS Safety Report 6109022-6 (Version None)
Quarter: 2009Q1

REPORT INFORMATION
  Report Type: 
  Country: None (occurrence: None)
  Receive Date: 20090310
  Receipt Date: 20090227
  Transmission Date: 20090719
  Serious: Yes (Death)
  Sender: FDA-Public Use
  Company Number: US-ROCHE-617252

PATIENT
  Sex: Male
  Weight: 54.9 kg

DRUGS (1)
  1. CAPECITABINE [Suspect]
     Indication: COLORECTAL CANCER
     Dosage: DOSAGE: 7 PILLS DAILY; FORM: PILLS
     Route: 065
     Dates: start: 20081104

REACTIONS (1)
  - DEATH [None]
